FAERS Safety Report 17122457 (Version 1)
Quarter: 2019Q4

REPORT INFORMATION
  Report Type: Spontaneous
  Country: US (occurrence: US)
  Receive Date: 20191113
  Receipt Date: 20191113
  Transmission Date: 20200122
  Serious: No
  Sender: FDA-Public Use
  Company Number: None

PATIENT
  Age: 78 Year
  Sex: Male
  Weight: 121.56 kg

DRUGS (13)
  1. MAGNESIUM OXIDE. [Concomitant]
     Active Substance: MAGNESIUM OXIDE
  2. DOFETILIDE. [Suspect]
     Active Substance: DOFETILIDE
  3. AMLODIPINE BESYLATE. [Concomitant]
     Active Substance: AMLODIPINE BESYLATE
  4. CALCIUM [Concomitant]
     Active Substance: CALCIUM
  5. TIKOSYN [Suspect]
     Active Substance: DOFETILIDE
  6. RIVAROXABAN [Concomitant]
     Active Substance: RIVAROXABAN
  7. VITAMIN B COMPLEX [Concomitant]
     Active Substance: CYANOCOBALAMIN\DEXPANTHENOL\NIACINAMIDE\PYRIDOXINE HYDROCHLORIDE\RIBOFLAVIN 5^-PHOSPHATE SODIUM\THIAMINE HYDROCHLORIDE\VITAMIN B COMPLEX
  8. PLANT MINERALS-PIPPIN ROCK [Concomitant]
  9. SOTALOL HCL [Suspect]
     Active Substance: SOTALOL
  10. MAGNESIUM [Concomitant]
     Active Substance: MAGNESIUM
  11. NONI JUICE [Concomitant]
     Active Substance: NONI FRUIT JUICE
  12. SELENIUM [Concomitant]
     Active Substance: SELENIUM
  13. YOURGEVITY: MG/CALCIUM [Concomitant]

REACTIONS (8)
  - Muscular weakness [None]
  - Renal failure [None]
  - Tendon pain [None]
  - Myalgia [None]
  - Ligament pain [None]
  - Pollakiuria [None]
  - Lethargy [None]
  - Pain in extremity [None]

NARRATIVE: CASE EVENT DATE: 20181001
